FAERS Safety Report 10242983 (Version 2)
Quarter: 2014Q2

REPORT INFORMATION
  Report Type: Report from Study
  Country: DE (occurrence: DE)
  Receive Date: 20140618
  Receipt Date: 20140618
  Transmission Date: 20141212
  Serious: Yes (Hospitalization)
  Sender: FDA-Public Use
  Company Number: DE-MERCK-1406DEU000780

PATIENT
  Age: 64 Year
  Sex: Male
  Weight: 89.5 kg

DRUGS (4)
  1. VORINOSTAT [Suspect]
     Indication: PLASMA CELL MYELOMA
     Dosage: 300 MG DAILY
     Route: 048
     Dates: start: 20140513, end: 20140523
  2. BORTEZOMIB [Suspect]
     Indication: PLASMA CELL MYELOMA
     Dosage: 2.6 MG DAILY
     Dates: start: 20140513, end: 20140520
  3. DOXORUBICIN [Suspect]
     Indication: PLASMA CELL MYELOMA
     Dosage: 18 MG DAILY
     Dates: start: 20140513, end: 20140520
  4. DEXAMETHASONE [Suspect]
     Indication: PLASMA CELL MYELOMA
     Dosage: 20 MG DAILY
     Route: 048
     Dates: start: 20140513, end: 20140520

REACTIONS (1)
  - Convulsion [Recovered/Resolved]
